FAERS Safety Report 20691060 (Version 1)
Quarter: 2022Q2

REPORT INFORMATION
  Report Type: Spontaneous
  Country: CN (occurrence: CN)
  Receive Date: 20220408
  Receipt Date: 20220408
  Transmission Date: 20220721
  Serious: Yes (Hospitalization)
  Sender: FDA-Public Use
  Company Number: CN-BAYER-2022A048106

PATIENT
  Age: 62 Year
  Sex: Female

DRUGS (2)
  1. REGORAFENIB [Suspect]
     Active Substance: REGORAFENIB
     Indication: Colon cancer stage IV
     Dosage: 80 MG, QD
     Route: 048
     Dates: start: 20180111
  2. BEVACIZUMAB [Concomitant]
     Active Substance: BEVACIZUMAB
     Dosage: UNK
     Dates: start: 2018

REACTIONS (2)
  - Renal-limited thrombotic microangiopathy [None]
  - Off label use [None]

NARRATIVE: CASE EVENT DATE: 20180111
